FAERS Safety Report 16577128 (Version 1)
Quarter: 2019Q3

REPORT INFORMATION
  Report Type: Spontaneous
  Country: US (occurrence: US)
  Receive Date: 20190716
  Receipt Date: 20190716
  Transmission Date: 20191004
  Serious: No
  Sender: FDA-Public Use
  Company Number: US-BAYER-2019-132790

PATIENT
  Sex: Female

DRUGS (2)
  1. MIRALAX [Suspect]
     Active Substance: POLYETHYLENE GLYCOL 3350
     Indication: CONSTIPATION
     Route: 048
  2. GAS-X [Concomitant]
     Active Substance: DIMETHICONE

REACTIONS (3)
  - Abdominal distension [Unknown]
  - Flatulence [Unknown]
  - Product use in unapproved indication [Unknown]
